FAERS Safety Report 19967723 (Version 1)
Quarter: 2021Q4

REPORT INFORMATION
  Report Type: Spontaneous
  Country: US (occurrence: US)
  Receive Date: 20211018
  Receipt Date: 20211018
  Transmission Date: 20220303
  Serious: Yes (Death)
  Sender: FDA-Public Use
  Company Number: None

PATIENT
  Age: 73 Year
  Sex: Female
  Weight: 110.25 kg

DRUGS (1)
  1. SANDOSTATIN LAR DEPOT [Suspect]
     Active Substance: OCTREOTIDE ACETATE
     Indication: Neuroendocrine carcinoma
     Dosage: ?          OTHER FREQUENCY:EVERY 30 DAYS;
     Route: 030
     Dates: start: 20210716, end: 20210929

REACTIONS (1)
  - Death [None]

NARRATIVE: CASE EVENT DATE: 20210929
